FAERS Safety Report 8255332-6 (Version None)
Quarter: 2012Q2

REPORT INFORMATION
  Report Type: 
  Country: None (occurrence: None)
  Receive Date: 20120403
  Receipt Date: 20120326
  Transmission Date: 20120825
  Serious: Yes (Other)
  Sender: FDA-Public Use
  Company Number: US-JNJFOC-20120304624

PATIENT
  Sex: Female
  Weight: 52.16 kg

DRUGS (4)
  1. XARELTO [Suspect]
     Indication: ATRIAL FIBRILLATION
     Route: 048
     Dates: start: 20120301, end: 20120304
  2. RYTHMOL [Concomitant]
     Indication: ARRHYTHMIA
     Route: 048
  3. ANTIHYPERTENSIVES [Concomitant]
     Indication: BLOOD PRESSURE
     Route: 048
  4. DILTIAZEM [Concomitant]
     Indication: BLOOD PRESSURE
     Route: 048

REACTIONS (1)
  - HEART RATE INCREASED [None]
